FAERS Safety Report 17559667 (Version 1)
Quarter: 2020Q1

REPORT INFORMATION
  Report Type: Spontaneous
  Country: US (occurrence: US)
  Receive Date: 20200319
  Receipt Date: 20200319
  Transmission Date: 20200409
  Serious: No
  Sender: FDA-Public Use
  Company Number: US-SA-2020SA067940

PATIENT
  Age: 63 Year
  Sex: Female

DRUGS (1)
  1. KEVZARA [Suspect]
     Active Substance: SARILUMAB
     Indication: UNEVALUABLE EVENT
     Dosage: 200 MG, QOW
     Route: 058
     Dates: start: 20191126

REACTIONS (2)
  - Product use in unapproved indication [Unknown]
  - Injection site dryness [Recovering/Resolving]

NARRATIVE: CASE EVENT DATE: 20191126
